FAERS Safety Report 26076229 (Version 1)
Quarter: 2025Q4

REPORT INFORMATION
  Report Type: Spontaneous
  Country: US (occurrence: US)
  Receive Date: 20251121
  Receipt Date: 20251121
  Transmission Date: 20260117
  Serious: No
  Sender: BAYER HEALTHCARE PHARMACEUTICALS INC.
  Company Number: US-BAYER-2025A152851

PATIENT
  Age: 29 Year
  Sex: Female

DRUGS (1)
  1. MIRENA [Suspect]
     Active Substance: LEVONORGESTREL
     Indication: Contraception
     Dosage: 20?G/DAY
     Route: 015
     Dates: start: 20250428

REACTIONS (7)
  - Palpitations [None]
  - Chest discomfort [None]
  - Chest pain [None]
  - Blood pressure increased [None]
  - Dizziness [None]
  - Dizziness [None]
  - Panic attack [None]

NARRATIVE: CASE EVENT DATE: 20250901
